FAERS Safety Report 6860286-0 (Version None)
Quarter: 2010Q3

REPORT INFORMATION
  Report Type: 
  Country: None (occurrence: None)
  Receive Date: 20100720
  Receipt Date: 20100713
  Transmission Date: 20110219
  Serious: Yes (Hospitalization, Other)
  Sender: FDA-Public Use
  Company Number: PHHY2010CA15250

PATIENT
  Sex: Female

DRUGS (2)
  1. SANDOSTATIN LAR [Suspect]
     Indication: ACROMEGALY
     Dosage: 40 MG EVERY 4 WEEKS
     Route: 030
     Dates: start: 20070123, end: 20071129
  2. CHEMOTHERAPEUTICS NOS [Concomitant]
     Dosage: UNK

REACTIONS (6)
  - CHEST PAIN [None]
  - NAUSEA [None]
  - NEOPLASM RECURRENCE [None]
  - PANCREATIC NEOPLASM [None]
  - PLEURAL EFFUSION [None]
  - THORACIC CAVITY DRAINAGE [None]
